FAERS Safety Report 8286289-X (Version None)
Quarter: 2012Q1

REPORT INFORMATION
  Report Type: 
  Country: None (occurrence: None)
  Receive Date: 20120314
  Receipt Date: 20100827
  Transmission Date: 20120608
  Serious: No
  Sender: FDA-Public Use
  Company Number: PHHY2010US57246

PATIENT
  Age: 32 Year
  Sex: Male

DRUGS (2)
  1. MOBAN [Concomitant]
  2. FANAPT [Suspect]
     Indication: SCHIZOPHRENIA
     Dosage: 10 MG, ORAL 0.5 DF
     Route: 048

REACTIONS (2)
  - VOMITING [None]
  - DIARRHOEA [None]
